FAERS Safety Report 6620512-X (Version None)
Quarter: 2010Q1

REPORT INFORMATION
  Report Type: 
  Country: None (occurrence: None)
  Receive Date: 20100308
  Receipt Date: 20100308
  Transmission Date: 20100710
  Serious: No
  Sender: FDA-Public Use
  Company Number: None

PATIENT
  Age: 30 Year
  Sex: Female
  Weight: 63.5036 kg

DRUGS (1)
  1. LEVAQUIN [Suspect]
     Indication: SINUSITIS
     Dosage: 1,   1X A DAY PO
     Route: 048
     Dates: start: 20091130, end: 20091201

REACTIONS (7)
  - ARTHRALGIA [None]
  - MUSCLE TWITCHING [None]
  - MYALGIA [None]
  - PALPITATIONS [None]
  - PARAESTHESIA [None]
  - TENDON DISORDER [None]
  - TINNITUS [None]
